FAERS Safety Report 7783186-0 (Version None)
Quarter: 2011Q3

REPORT INFORMATION
  Report Type: 
  Country: None (occurrence: None)
  Receive Date: 20110928
  Receipt Date: 20110914
  Transmission Date: 20111222
  Serious: Yes (Other)
  Sender: FDA-Public Use
  Company Number: AU-SANOFI-AVENTIS-2011SA060312

PATIENT
  Age: 19 Year
  Sex: Male

DRUGS (20)
  1. LORAZEPAM [Concomitant]
     Route: 065
  2. HALOPERIDOL [Suspect]
     Route: 065
  3. ETHAMBUTOL HYDROCHLORIDE [Concomitant]
     Indication: TUBERCULOSIS
     Route: 065
     Dates: start: 20070101
  4. TOPIRAMATE [Concomitant]
     Route: 065
  5. ALLOPURINOL [Concomitant]
     Route: 065
  6. LITHIUM CARBONATE [Suspect]
     Route: 065
  7. LITHIUM CARBONATE [Suspect]
     Indication: MANIA
     Route: 065
  8. CLOZAPINE [Suspect]
     Route: 065
  9. HALOPERIDOL [Suspect]
     Route: 065
  10. VALPROATE SODIUM [Concomitant]
     Route: 065
  11. CLOZAPINE [Suspect]
     Indication: MANIA
     Route: 065
  12. CLOZAPINE [Suspect]
     Route: 065
  13. PYRAZINAMIDE [Concomitant]
     Indication: TUBERCULOSIS
     Route: 065
     Dates: start: 20070101
  14. CLOBAZAM [Concomitant]
     Route: 065
  15. QUETIAPINE FUMARATE [Suspect]
     Route: 065
     Dates: start: 20100101
  16. RIFAMPICIN [Suspect]
     Indication: TUBERCULOSIS
     Route: 065
     Dates: start: 20070101
  17. CLOZAPINE [Suspect]
     Route: 065
  18. ISONIAZID [Suspect]
     Indication: TUBERCULOSIS
     Route: 065
     Dates: start: 20070101
  19. HALOPERIDOL [Suspect]
     Indication: MANIA
     Route: 065
  20. HALOPERIDOL [Suspect]
     Route: 065

REACTIONS (3)
  - NEUROLEPTIC MALIGNANT SYNDROME [None]
  - NEUTROPENIA [None]
  - LEUKOPENIA [None]
